FAERS Safety Report 8165978-1 (Version None)
Quarter: 2012Q1

REPORT INFORMATION
  Report Type: 
  Country: None (occurrence: None)
  Receive Date: 20120227
  Receipt Date: 20120130
  Transmission Date: 20120608
  Serious: No
  Sender: FDA-Public Use
  Company Number: US-MYLANLABS-2011S1026459

PATIENT
  Sex: Female
  Weight: 79.38 kg

DRUGS (2)
  1. AMNESTEEM [Suspect]
     Dates: end: 20111227
  2. AMNESTEEM [Suspect]
     Dates: start: 20110914

REACTIONS (1)
  - HYPERTRIGLYCERIDAEMIA [None]
